FAERS Safety Report 17147238 (Version 1)
Quarter: 2019Q4

REPORT INFORMATION
  Report Type: Spontaneous
  Country: FR (occurrence: FR)
  Receive Date: 20191212
  Receipt Date: 20191212
  Transmission Date: 20200122
  Serious: Yes (Life-Threatening, Hospitalization)
  Sender: FDA-Public Use
  Company Number: FR-MYLANLABS-2019M1122160

PATIENT
  Age: 58 Year
  Sex: Male
  Weight: 67 kg

DRUGS (3)
  1. DOCETAXEL. [Suspect]
     Active Substance: DOCETAXEL
     Indication: OESOPHAGEAL CARCINOMA
     Dosage: UNK (91 MG PAR CURE)
     Route: 042
     Dates: start: 20190715, end: 20190715
  2. NATISPRAY [Concomitant]
     Active Substance: NITROGLYCERIN
     Dosage: UNK
  3. OXALIPLATIN. [Suspect]
     Active Substance: OXALIPLATIN
     Indication: OESOPHAGEAL CARCINOMA
     Dosage: 155 MILLIGRAM, CYCLE (155 MG PAR CURE)
     Route: 042
     Dates: start: 201907, end: 201907

REACTIONS (5)
  - Abdominal pain [Not Recovered/Not Resolved]
  - Angina pectoris [Not Recovered/Not Resolved]
  - Chest pain [Not Recovered/Not Resolved]
  - Hyperhidrosis [Not Recovered/Not Resolved]
  - Malaise [Not Recovered/Not Resolved]

NARRATIVE: CASE EVENT DATE: 20190715
